FAERS Safety Report 5427649-1 (Version None)
Quarter: 2007Q3

REPORT INFORMATION
  Report Type: 
  Country: None (occurrence: None)
  Receive Date: 20070828
  Receipt Date: 20070820
  Transmission Date: 20080115
  Serious: Yes (Death)
  Sender: FDA-Public Use
  Company Number: FR-BRISTOL-MYERS SQUIBB COMPANY-13887880

PATIENT
  Age: 60 Year
  Sex: Female

DRUGS (14)
  1. ERBITUX [Suspect]
     Indication: NEOPLASM MALIGNANT
     Route: 042
     Dates: start: 20070731, end: 20070731
  2. CISPLATIN [Suspect]
     Indication: NEOPLASM MALIGNANT
     Dosage: ALSO 01AUG07; 09-JUL-07 TO 09-JUL-07
     Route: 042
     Dates: start: 20070802, end: 20070802
  3. FLUOROURACIL [Suspect]
     Indication: NEOPLASM MALIGNANT
     Dosage: ANOTHER THERAPY DATE: 09-JUL-07 TO 10-JUL-2007
     Route: 042
     Dates: start: 20070731, end: 20070731
  4. CLASTOBAN [Concomitant]
  5. LEXOMIL [Concomitant]
  6. LASIX [Concomitant]
  7. PRIMPERAN INJ [Concomitant]
  8. ALDACTONE [Concomitant]
  9. ZOFRAN [Concomitant]
     Indication: CHEMOTHERAPY
  10. SOLU-MEDROL [Concomitant]
  11. TARDYFERON [Concomitant]
  12. NEXIUM [Concomitant]
  13. ATARAX [Concomitant]
  14. EFFERALGAN CODEINE [Concomitant]

REACTIONS (1)
  - DEATH [None]
